FAERS Safety Report 16382083 (Version 2)
Quarter: 2019Q2

REPORT INFORMATION
  Report Type: Spontaneous
  Country: JP (occurrence: JP)
  Receive Date: 20190603
  Receipt Date: 20190613
  Transmission Date: 20190711
  Serious: Yes (Other)
  Sender: FDA-Public Use
  Company Number: JP-TEVA-2019-JP-1040217

PATIENT
  Age: 86 Year
  Sex: Female

DRUGS (7)
  1. AZILECT [Suspect]
     Active Substance: RASAGILINE MESYLATE
     Dosage: .5 MILLIGRAM DAILY;
     Route: 048
     Dates: start: 20190412, end: 20190520
  2. TRERIEF [Concomitant]
     Active Substance: ZONISAMIDE
  3. NEODOPASTON [Concomitant]
     Active Substance: CARBIDOPA\LEVODOPA
  4. AZILECT [Suspect]
     Active Substance: RASAGILINE MESYLATE
     Dosage: 1 MILLIGRAM DAILY;
     Route: 048
     Dates: start: 20190315, end: 20190408
  5. NOURIAST [Concomitant]
     Active Substance: ISTRADEFYLLINE
  6. CABASER [Concomitant]
     Active Substance: CABERGOLINE
  7. AZILECT [Suspect]
     Active Substance: RASAGILINE MESYLATE
     Indication: PARKINSON^S DISEASE
     Dosage: .5 MILLIGRAM DAILY;
     Route: 048
     Dates: start: 20190301, end: 20190314

REACTIONS (3)
  - Hallucination [Recovering/Resolving]
  - Cognitive disorder [Recovering/Resolving]
  - Mental disorder [Recovering/Resolving]

NARRATIVE: CASE EVENT DATE: 20190520
